FAERS Safety Report 9280876 (Version 1)
Quarter: 2013Q2

REPORT INFORMATION
  Report Type: Spontaneous
  Country: US (occurrence: None)
  Receive Date: 20130508
  Receipt Date: 20130508
  Transmission Date: 20140414
  Serious: No
  Sender: FDA-Public Use
  Company Number: None

PATIENT
  Age: 44 Year
  Sex: Female

DRUGS (2)
  1. CLOZAPINE [Suspect]
     Dosage: 350MG BEDTIME PO  SEVERAL MONTHS
     Route: 048
  2. CLOZAPINE [Suspect]

REACTIONS (1)
  - Dysphemia [None]
